FAERS Safety Report 10698965 (Version 1)
Quarter: 2015Q1

REPORT INFORMATION
  Report Type: Spontaneous
  Country: US (occurrence: US)
  Receive Date: 20150108
  Receipt Date: 20150108
  Transmission Date: 20150721
  Serious: No
  Sender: FDA-Public Use
  Company Number: US-GLAXOSMITHKLINE-US2014044998

PATIENT
  Age: 70 Year
  Sex: Female

DRUGS (2)
  1. NICORETTE [Suspect]
     Active Substance: NICOTINE
     Indication: SMOKING CESSATION THERAPY
     Route: 002
  2. NICORETTE [Suspect]
     Active Substance: NICOTINE

REACTIONS (3)
  - Gingival disorder [Not Recovered/Not Resolved]
  - Drug administration error [Unknown]
  - Nicotine dependence [Not Recovered/Not Resolved]
